FAERS Safety Report 15989479 (Version 1)
Quarter: 2019Q1

REPORT INFORMATION
  Report Type: Spontaneous
  Country: US (occurrence: US)
  Receive Date: 20190221
  Receipt Date: 20190221
  Transmission Date: 20190418
  Serious: No
  Sender: FDA-Public Use
  Company Number: US-PFIZER INC-2019071132

PATIENT
  Age: 68 Year
  Sex: Male
  Weight: 127 kg

DRUGS (1)
  1. ZITHROMAX [Suspect]
     Active Substance: AZITHROMYCIN DIHYDRATE
     Indication: INFECTION
     Dosage: UNK

REACTIONS (5)
  - Drug ineffective [Unknown]
  - Wheezing [Unknown]
  - Infection [Unknown]
  - Cough [Unknown]
  - Nasal congestion [Unknown]
